FAERS Safety Report 6240657-6 (Version None)
Quarter: 2009Q2

REPORT INFORMATION
  Report Type: 
  Country: None (occurrence: None)
  Receive Date: 20090623
  Receipt Date: 20081202
  Transmission Date: 20091009
  Serious: No
  Sender: FDA-Public Use
  Company Number: US-ASTRAZENECA-2008UW26977

PATIENT
  Age: 88 Year
  Sex: Female
  Weight: 72.6 kg

DRUGS (3)
  1. PULMICORT FLEXHALER [Suspect]
     Indication: ASTHMA
     Dosage: USED AS NEEDED NOT DAILY
     Route: 055
  2. XOPENEX [Concomitant]
  3. MAXZIDE [Concomitant]

REACTIONS (1)
  - HEART RATE IRREGULAR [None]
